FAERS Safety Report 9608592 (Version 2)
Quarter: 2013Q4

REPORT INFORMATION
  Report Type: Spontaneous
  Country: US (occurrence: US)
  Receive Date: 20131009
  Receipt Date: 20131025
  Transmission Date: 20140711
  Serious: Yes (Life-Threatening, Other)
  Sender: FDA-Public Use
  Company Number: US-ELI_LILLY_AND_COMPANY-US201309010390

PATIENT
  Age: 21 Year
  Sex: Male

DRUGS (3)
  1. OLANZAPINE [Suspect]
  2. CITALOPRAM [Suspect]
  3. CLONAZEPAM [Concomitant]

REACTIONS (9)
  - Cardiotoxicity [Unknown]
  - Convulsion [Unknown]
  - Unresponsive to stimuli [Unknown]
  - Bradycardia [Unknown]
  - Hypotension [Unknown]
  - Pneumonia aspiration [Unknown]
  - Rales [Unknown]
  - Miosis [Unknown]
  - Overdose [Unknown]
